FAERS Safety Report 12480256 (Version 1)
Quarter: 2016Q2

REPORT INFORMATION
  Report Type: Spontaneous
  Country: US (occurrence: US)
  Receive Date: 20160620
  Receipt Date: 20160620
  Transmission Date: 20160815
  Serious: No
  Sender: FDA-Public Use
  Company Number: US-JNJFOC-20160510053

PATIENT
  Sex: Female

DRUGS (1)
  1. LEVAQUIN [Suspect]
     Active Substance: LEVOFLOXACIN
     Indication: MIGRAINE
     Route: 048

REACTIONS (7)
  - Pyrexia [Recovered/Resolved]
  - Diarrhoea [Recovered/Resolved]
  - Joint swelling [Unknown]
  - Vomiting [Recovered/Resolved]
  - Bursitis [Unknown]
  - Influenza [Unknown]
  - Tendonitis [Unknown]

NARRATIVE: CASE EVENT DATE: 20160107
